FAERS Safety Report 5475512-2 (Version None)
Quarter: 2007Q3

REPORT INFORMATION
  Report Type: 
  Country: None (occurrence: None)
  Receive Date: 20070913
  Receipt Date: 20070710
  Transmission Date: 20080115
  Serious: Yes (Other)
  Sender: FDA-Public Use
  Company Number: 2007056259

PATIENT
  Age: 46 Year
  Sex: Male
  Weight: 90.9 kg

DRUGS (4)
  1. LOPID [Suspect]
     Indication: BLOOD CHOLESTEROL INCREASED
     Dosage: 600 MG TWICE DAILY
     Dates: start: 20070621
  2. LOPID [Suspect]
     Indication: PAIN
     Dosage: 600 MG TWICE DAILY
     Dates: start: 20070621
  3. LORTAB [Concomitant]
  4. HYDROCODONE BITARTRATE [Concomitant]

REACTIONS (4)
  - ANOREXIA [None]
  - BLOOD PRESSURE ABNORMAL [None]
  - DEPRESSION [None]
  - INSOMNIA [None]
